FAERS Safety Report 7329782-6 (Version None)
Quarter: 2011Q1

REPORT INFORMATION
  Report Type: 
  Country: None (occurrence: None)
  Receive Date: 20110303
  Receipt Date: 20110301
  Transmission Date: 20110831
  Serious: Yes (Hospitalization, Disabling, Other)
  Sender: FDA-Public Use
  Company Number: US-PFIZER INC-2010093160

PATIENT
  Sex: Female
  Weight: 99.773 kg

DRUGS (9)
  1. NIFEDIPINE [Concomitant]
     Indication: BLOOD PRESSURE
     Dosage: 30 MG, UNK
  2. SEROQUEL XR [Concomitant]
     Dosage: 50 MG, DAILY
  3. XANAX [Suspect]
     Dosage: 1 MG, 4X/DAY
  4. ENALAPRIL [Concomitant]
     Dosage: 10 MG, DAILY
  5. CHERATUSSIN [Concomitant]
     Dosage: UNK
  6. GEMFIBROZIL [Concomitant]
     Dosage: 600 MG, UNK
  7. PAXIL [Concomitant]
     Dosage: UNK
  8. ESTRADIOL [Concomitant]
     Dosage: 30 MG, DAILY
  9. PRISTIQ [Suspect]
     Indication: DEPRESSION
     Dosage: 50 MG, DAILY
     Dates: start: 20100101

REACTIONS (6)
  - VIOLENCE-RELATED SYMPTOM [None]
  - INFECTION [None]
  - HOSTILITY [None]
  - DRUG INEFFECTIVE [None]
  - MAJOR DEPRESSION [None]
  - FEELING ABNORMAL [None]
